FAERS Safety Report 5248560-5 (Version None)
Quarter: 2007Q1

REPORT INFORMATION
  Report Type: 
  Country: None (occurrence: None)
  Receive Date: 20070222
  Receipt Date: 20070208
  Transmission Date: 20070707
  Serious: Yes (Death)
  Sender: FDA-Public Use
  Company Number: 2007SP002457

PATIENT
  Age: 78 Year
  Sex: Male
  Weight: 73 kg

DRUGS (7)
  1. INTEGRILIN [Suspect]
     Indication: PERCUTANEOUS CORONARY INTERVENTION
     Dosage: IV
     Route: 042
  2. ASPIRIN [Suspect]
     Indication: MYOCARDIAL INFARCTION
     Dosage: 81 MG;QD;PO
     Route: 048
     Dates: start: 20061201, end: 20070119
  3. PLAVIX [Suspect]
     Indication: MYOCARDIAL INFARCTION
     Dosage: 75 MG;QD;PO
     Route: 048
     Dates: start: 20061201, end: 20070119
  4. COUMADIN [Suspect]
     Indication: ATRIAL FIBRILLATION
     Dosage: 2.5 MG;QD;PO
     Route: 048
     Dates: start: 20061222, end: 20070119
  5. METOPROLOL (CON.) [Concomitant]
  6. COVERSYL /00790701/ (CON.) [Concomitant]
  7. LIPITOR (CON.) [Concomitant]

REACTIONS (1)
  - DEATH [None]
